FAERS Safety Report 5880127-8 (Version None)
Quarter: 2008Q3

REPORT INFORMATION
  Report Type: 
  Country: None (occurrence: None)
  Receive Date: 20080912
  Receipt Date: 20080901
  Transmission Date: 20090109
  Serious: Yes (Other)
  Sender: FDA-Public Use
  Company Number: US-PFIZER INC-2008073323

PATIENT
  Sex: Female
  Weight: 72.727 kg

DRUGS (2)
  1. SERTRALINE [Suspect]
  2. LIBRAX [Concomitant]
     Route: 048

REACTIONS (2)
  - ABDOMINAL RIGIDITY [None]
  - MEDICATION ERROR [None]
